FAERS Safety Report 19148268 (Version 1)
Quarter: 2021Q2

REPORT INFORMATION
  Report Type: Spontaneous
  Country: DE (occurrence: DE)
  Receive Date: 20210416
  Receipt Date: 20210416
  Transmission Date: 20210717
  Serious: Yes (Hospitalization)
  Sender: FDA-Public Use
  Company Number: DE-PFIZER INC-2021400071

PATIENT
  Age: 89 Year
  Sex: Female

DRUGS (14)
  1. PREDNISOLON [PREDNISOLONE] [Suspect]
     Active Substance: PREDNISOLONE
     Dosage: UNK
     Route: 048
  2. LEVOTHYROXINE SODIUM. [Concomitant]
     Active Substance: LEVOTHYROXINE SODIUM
     Dosage: 100 ?G, 1?0?0?0
  3. PANTOPRAZOL [PANTOPRAZOLE] [Concomitant]
     Active Substance: PANTOPRAZOLE
     Dosage: 40 MG, 1?0?0?0
  4. APIXABAN [Concomitant]
     Active Substance: APIXABAN
     Dosage: 2.5 MG, 1?0?0?0
  5. SPIRONOLACTON [Suspect]
     Active Substance: SPIRONOLACTONE
     Dosage: 50 MG, 1?0?0?0
  6. RITUXIMAB. [Suspect]
     Active Substance: RITUXIMAB
     Dosage: UNK
     Route: 042
  7. CANDESARTAN. [Concomitant]
     Active Substance: CANDESARTAN
     Dosage: 24 MG, 1?0?0.5?0 (1X 16 MG, 1X8 MG)
  8. CYCLOPHOSPHAMIDE. [Suspect]
     Active Substance: CYCLOPHOSPHAMIDE
     Dosage: UNK
     Route: 042
  9. TORASEMID [Suspect]
     Active Substance: TORSEMIDE
     Dosage: 10 MG, 1?0?0?0
  10. COTRIMOXAZOL [Concomitant]
     Active Substance: SULFAMETHOXAZOLE\TRIMETHOPRIM
     Dosage: 800|160 MG/3X/WEEK, MONDAYS, WEDNESDAYS, FRIDAYS
  11. VINCRISTIN [Suspect]
     Active Substance: VINCRISTINE
     Dosage: UNK
     Route: 042
  12. COLECALCIFEROL [Concomitant]
     Active Substance: CHOLECALCIFEROL
     Dosage: 1000 IU, 1?0?0?0
  13. BISOPROLOL [Concomitant]
     Active Substance: BISOPROLOL
     Dosage: 5 MG, 1?0?1?0
  14. ALLOPURINOL. [Concomitant]
     Active Substance: ALLOPURINOL
     Dosage: 300 MG, 1?0?0?0

REACTIONS (3)
  - Acute kidney injury [Unknown]
  - Renal function test abnormal [Unknown]
  - Leukocytosis [Unknown]
